FAERS Safety Report 21338396 (Version 2)
Quarter: 2022Q4

REPORT INFORMATION
  Report Type: Spontaneous
  Country: US (occurrence: US)
  Receive Date: 20220915
  Receipt Date: 20221214
  Transmission Date: 20230113
  Serious: Yes (Other)
  Sender: FDA-Public Use
  Company Number: US-JNJFOC-20220928886

PATIENT
  Age: 78 Year
  Sex: Female
  Weight: 59.020 kg

DRUGS (3)
  1. STELARA [Suspect]
     Active Substance: USTEKINUMAB
     Indication: Crohn^s disease
     Route: 040
     Dates: start: 20210907
  2. STELARA [Suspect]
     Active Substance: USTEKINUMAB
     Indication: Crohn^s disease
     Route: 058
     Dates: start: 20211102
  3. STELARA [Suspect]
     Active Substance: USTEKINUMAB

REACTIONS (9)
  - Posterior reversible encephalopathy syndrome [Unknown]
  - Brain injury [Unknown]
  - Hip fracture [Unknown]
  - Fall [Unknown]
  - Hypertension [Unknown]
  - Electrolyte imbalance [Recovered/Resolved]
  - Confusional state [Unknown]
  - Blood glucose increased [Unknown]
  - Head injury [Unknown]

NARRATIVE: CASE EVENT DATE: 20210910
